FAERS Safety Report 5227233-9 (Version None)
Quarter: 2007Q1

REPORT INFORMATION
  Report Type: 
  Country: None (occurrence: None)
  Receive Date: 20070202
  Receipt Date: 20070125
  Transmission Date: 20070707
  Serious: Yes (Death, Hospitalization)
  Sender: FDA-Public Use
  Company Number: FR-GLAXOSMITHKLINE-B0456683A

PATIENT
  Age: 75 Year
  Sex: Female

DRUGS (7)
  1. ARIXTRA [Suspect]
     Indication: PHLEBITIS
     Dosage: 7.5MG PER DAY
     Route: 058
     Dates: start: 20070101, end: 20070101
  2. INSULINE [Concomitant]
  3. VALSARTAN AND HYDROCHLOROTHIAZIDE [Concomitant]
  4. CARDENSIEL [Concomitant]
  5. LASIX [Concomitant]
  6. KALEORID [Concomitant]
  7. PLAVIX [Concomitant]

REACTIONS (6)
  - ABDOMINAL DISTENSION [None]
  - ABDOMINAL PAIN [None]
  - DEATH [None]
  - DIABETES MELLITUS [None]
  - GASTROINTESTINAL HAEMORRHAGE [None]
  - INJECTION SITE HAEMATOMA [None]
